FAERS Safety Report 8029781-5 (Version None)
Quarter: 2011Q4

REPORT INFORMATION
  Report Type: 
  Country: None (occurrence: None)
  Receive Date: 20111130
  Receipt Date: 20110516
  Transmission Date: 20120403
  Serious: Yes (Other)
  Sender: FDA-Public Use
  Company Number: US200910005208

PATIENT
  Age: 61 Year
  Sex: Female

DRUGS (9)
  1. BEELITH (MAGNESIUM OXIDE, PYRIDOXINE HYDROCHLORIDE) [Concomitant]
  2. VYTORIN [Concomitant]
  3. MERIDIA [Concomitant]
  4. FENOFIBRATE [Concomitant]
  5. ATENOLOL [Concomitant]
  6. QUINAPRIL HCL (QUINAPRIL HYDROCHLORIDE) [Concomitant]
  7. BYETTA [Suspect]
     Dosage: 5 UG, BID, SUBCUTANEOUS 10 UG, BID, SUBCUTANEOUS
     Route: 058
     Dates: start: 20071214, end: 20071227
  8. BYETTA [Suspect]
     Dosage: 5 UG, BID, SUBCUTANEOUS 10 UG, BID, SUBCUTANEOUS
     Route: 058
     Dates: start: 20071030
  9. ASPIRIN [Concomitant]

REACTIONS (3)
  - PANCREATITIS ACUTE [None]
  - OFF LABEL USE [None]
  - WEIGHT DECREASED [None]
